FAERS Safety Report 7628404-4 (Version None)
Quarter: 2011Q3

REPORT INFORMATION
  Report Type: 
  Country: None (occurrence: None)
  Receive Date: 20110722
  Receipt Date: 20110719
  Transmission Date: 20111222
  Serious: No
  Sender: FDA-Public Use
  Company Number: US-PFIZER INC-2011164640

PATIENT
  Age: 45 Year
  Sex: Male

DRUGS (1)
  1. EFFEXOR [Suspect]
     Indication: ANXIETY DISORDER
     Dosage: UNK

REACTIONS (1)
  - SEXUAL DYSFUNCTION [None]
